FAERS Safety Report 6896386-9 (Version None)
Quarter: 2010Q3

REPORT INFORMATION
  Report Type: 
  Country: None (occurrence: None)
  Receive Date: 20100802
  Receipt Date: 20090209
  Transmission Date: 20110219
  Serious: No
  Sender: FDA-Public Use
  Company Number: US-PFIZER INC-2009167782

PATIENT

DRUGS (1)
  1. DEPO-MEDROL [Suspect]

REACTIONS (8)
  - BLOOD PRESSURE INCREASED [None]
  - DIZZINESS [None]
  - ERYTHEMA [None]
  - MALAISE [None]
  - NAUSEA [None]
  - SWELLING [None]
  - SWELLING FACE [None]
  - URTICARIA [None]
